FAERS Safety Report 11106028 (Version 2)
Quarter: 2015Q2

REPORT INFORMATION
  Report Type: Report from Study
  Country: JP (occurrence: JP)
  Receive Date: 20150512
  Receipt Date: 20150616
  Transmission Date: 20150821
  Serious: Yes (Disabling)
  Sender: FDA-Public Use
  Company Number: JP-EISAI MEDICAL RESEARCH-EC-2015-006660

PATIENT
  Age: 85 Year
  Sex: Male

DRUGS (16)
  1. ARICEPT [Suspect]
     Active Substance: DONEPEZIL HYDROCHLORIDE
     Indication: DEMENTIA ALZHEIMER^S TYPE
     Route: 048
     Dates: start: 20140226
  2. PARIET [Concomitant]
     Active Substance: RABEPRAZOLE SODIUM
  3. FEBURIC [Concomitant]
     Active Substance: FEBUXOSTAT
  4. LUNESTA [Concomitant]
     Active Substance: ESZOPICLONE
  5. MEMARY [Suspect]
     Active Substance: MEMANTINE HYDROCHLORIDE
     Route: 048
     Dates: start: 20140402, end: 20140819
  6. PURSENNID [Concomitant]
     Active Substance: SENNOSIDES A AND B
  7. MEMARY [Suspect]
     Active Substance: MEMANTINE HYDROCHLORIDE
     Indication: DEMENTIA ALZHEIMER^S TYPE
     Route: 048
     Dates: start: 20140226, end: 20140401
  8. NATRIX [Concomitant]
     Active Substance: INDAPAMIDE
  9. MEMARY [Suspect]
     Active Substance: MEMANTINE HYDROCHLORIDE
     Route: 048
     Dates: start: 20140820, end: 20140902
  10. BAYASPIRIN [Concomitant]
     Active Substance: ASPIRIN
  11. MIYA-BM [Concomitant]
     Active Substance: CLOSTRIDIUM BUTYRICUM SPORES STRAIN M-55
  12. ROZEREM [Concomitant]
     Active Substance: RAMELTEON
  13. LUPRAC [Concomitant]
     Active Substance: TORSEMIDE
  14. SELARA [Concomitant]
     Active Substance: EPLERENONE
  15. ARTIST [Concomitant]
     Active Substance: CARVEDILOL
  16. DIOVAN [Concomitant]
     Active Substance: VALSARTAN

REACTIONS (1)
  - Delirium [Recovered/Resolved with Sequelae]

NARRATIVE: CASE EVENT DATE: 20140604
